FAERS Safety Report 8338373-X (Version None)
Quarter: 2012Q2

REPORT INFORMATION
  Report Type: 
  Country: None (occurrence: None)
  Receive Date: 20120504
  Receipt Date: 20120427
  Transmission Date: 20120825
  Serious: Yes (Death, Other)
  Sender: FDA-Public Use
  Company Number: US-ROCHE-1018043

PATIENT
  Sex: Male

DRUGS (1)
  1. ZELBORAF [Suspect]
     Indication: MALIGNANT MELANOMA
     Route: 001

REACTIONS (10)
  - DEPRESSED MOOD [None]
  - NAUSEA [None]
  - MYALGIA [None]
  - DECREASED APPETITE [None]
  - DEATH [None]
  - ARTHRALGIA [None]
  - BRAIN NEOPLASM [None]
  - RASH [None]
  - PAIN IN EXTREMITY [None]
  - MASS [None]
